FAERS Safety Report 7734596-9 (Version None)
Quarter: 2011Q3

REPORT INFORMATION
  Report Type: 
  Country: None (occurrence: None)
  Receive Date: 20110907
  Receipt Date: 20110831
  Transmission Date: 20111222
  Serious: Yes (Disabling, Other)
  Sender: FDA-Public Use
  Company Number: US-PFIZER INC-2011202399

PATIENT
  Sex: Female
  Weight: 70.295 kg

DRUGS (1)
  1. LYRICA [Suspect]
     Indication: FIBROMYALGIA
     Dosage: 150 MG, 3X/DAY
     Dates: start: 20060401

REACTIONS (3)
  - EYE DISORDER [None]
  - AMNESIA [None]
  - HEARING IMPAIRED [None]
